FAERS Safety Report 15451432 (Version 1)
Quarter: 2018Q3

REPORT INFORMATION
  Report Type: Spontaneous
  Country: US (occurrence: US)
  Receive Date: 20180927
  Receipt Date: 20180927
  Transmission Date: 20181010
  Serious: Yes (Disabling)
  Sender: FDA-Public Use
  Company Number: None

PATIENT
  Age: 71 Year
  Sex: Female

DRUGS (1)
  1. TAMOXIFEN [Suspect]
     Active Substance: TAMOXIFEN
     Indication: HORMONE SUPPRESSION THERAPY

REACTIONS (4)
  - Impaired quality of life [None]
  - Aphasia [None]
  - Cognitive disorder [None]
  - Mental impairment [None]

NARRATIVE: CASE EVENT DATE: 20100101
